FAERS Safety Report 12278497 (Version 1)
Quarter: 2016Q2

REPORT INFORMATION
  Report Type: Spontaneous
  Country: BE (occurrence: BE)
  Receive Date: 20160418
  Receipt Date: 20160418
  Transmission Date: 20160815
  Serious: Yes (Other)
  Sender: FDA-Public Use
  Company Number: BE-PFIZER INC-2016214788

PATIENT
  Age: 39 Year
  Sex: Female

DRUGS (4)
  1. EFFEXOR XR [Suspect]
     Active Substance: VENLAFAXINE HYDROCHLORIDE
     Dosage: 30 DF, SINGLE
     Route: 048
     Dates: start: 20160325, end: 20160325
  2. XANAX [Suspect]
     Active Substance: ALPRAZOLAM
     Dosage: 1 DF, SINGLE
     Dates: start: 20160325, end: 20160325
  3. ZINAT [Suspect]
     Active Substance: CEFUROXIME AXETIL
     Dosage: 3 OR 4 DF, SINGLE
     Dates: start: 20160325, end: 20160325
  4. DAFALGAN [Suspect]
     Active Substance: ACETAMINOPHEN
     Dosage: 3 DF, SINGLE
     Dates: start: 20160325, end: 20160325

REACTIONS (2)
  - Suicide attempt [Unknown]
  - Intentional overdose [Unknown]

NARRATIVE: CASE EVENT DATE: 20160325
